FAERS Safety Report 15091215 (Version 1)
Quarter: 2018Q2

REPORT INFORMATION
  Report Type: Spontaneous
  Country: US (occurrence: US)
  Receive Date: 20180629
  Receipt Date: 20180629
  Transmission Date: 20180711
  Serious: No
  Sender: FDA-Public Use
  Company Number: US-AMGEN-USASP2015055919

PATIENT
  Age: 88 Year
  Sex: Female
  Weight: 37.19 kg

DRUGS (1)
  1. PROLIA [Suspect]
     Active Substance: DENOSUMAB
     Indication: OSTEOPOROSIS
     Dosage: 60 MG, Q6MO
     Route: 058

REACTIONS (21)
  - Neck pain [Unknown]
  - Pain [Unknown]
  - Headache [Unknown]
  - Rhinorrhoea [Unknown]
  - Respiratory rate decreased [Unknown]
  - Back pain [Unknown]
  - Nasopharyngitis [Unknown]
  - Abdominal pain [Unknown]
  - Abdominal distension [Unknown]
  - Chest discomfort [Unknown]
  - Somnolence [Unknown]
  - Pain in extremity [Unknown]
  - Sputum discoloured [Unknown]
  - Pollakiuria [Unknown]
  - Asthenia [Unknown]
  - Feeling cold [Unknown]
  - Fatigue [Unknown]
  - Feeling hot [Unknown]
  - Sneezing [Unknown]
  - Muscular weakness [Unknown]
  - Arthralgia [Unknown]

NARRATIVE: CASE EVENT DATE: 201412
